FAERS Safety Report 11414168 (Version 1)
Quarter: 2015Q3

REPORT INFORMATION
  Report Type: Spontaneous
  Country: US (occurrence: US)
  Receive Date: 20150824
  Receipt Date: 20150824
  Transmission Date: 20151125
  Serious: No
  Sender: FDA-Public Use
  Company Number: ALCN2015US005211

PATIENT
  Age: 17 Year
  Sex: Female

DRUGS (1)
  1. PAZEO [Suspect]
     Active Substance: OLOPATADINE HYDROCHLORIDE
     Indication: EYE IRRITATION
     Dosage: 1 GTT, ONCE/SINGLE
     Route: 047
     Dates: start: 20150818, end: 20150818

REACTIONS (4)
  - Eye irritation [Recovered/Resolved]
  - Iris disorder [Recovered/Resolved]
  - Eye swelling [Recovered/Resolved]
  - Vision blurred [Recovered/Resolved]

NARRATIVE: CASE EVENT DATE: 20150818
